FAERS Safety Report 4705420-3 (Version None)
Quarter: 2005Q3

REPORT INFORMATION
  Report Type: 
  Country: None (occurrence: None)
  Receive Date: 20050701
  Receipt Date: 20050508
  Transmission Date: 20060218
  Serious: Yes (Hospitalization)
  Sender: FDA-Public Use
  Company Number: CN-GLAXOSMITHKLINE-B0380168A

PATIENT
  Age: 71 Year
  Sex: Male
  Weight: 70 kg

DRUGS (3)
  1. SALMETEROL/FLUTICASONE PROPIONATE 50/500UG [Suspect]
     Indication: CHRONIC OBSTRUCTIVE PULMONARY DISEASE
     Dosage: 1BLS TWICE PER DAY
     Route: 055
     Dates: start: 20040923
  2. IPRATROPIUM BROMIDE [Concomitant]
     Route: 055
     Dates: start: 20000101
  3. AMINOPHYLLINE [Concomitant]
     Dosage: .2G THREE TIMES PER DAY
     Route: 048
     Dates: start: 20050101

REACTIONS (9)
  - BLOOD BICARBONATE INCREASED [None]
  - COLD EXPOSURE INJURY [None]
  - COUGH [None]
  - DYSPNOEA [None]
  - LYMPHOCYTE PERCENTAGE DECREASED [None]
  - PNEUMONIA [None]
  - PRODUCTIVE COUGH [None]
  - PULMONARY TUBERCULOSIS [None]
  - PYREXIA [None]
